FAERS Safety Report 5646201-6 (Version None)
Quarter: 2008Q1

REPORT INFORMATION
  Report Type: 
  Country: None (occurrence: None)
  Receive Date: 20080227
  Receipt Date: 20080212
  Transmission Date: 20080703
  Serious: Yes (Death)
  Sender: FDA-Public Use
  Company Number: 2008S1002497

PATIENT
  Age: 51 Year
  Sex: Female

DRUGS (3)
  1. CLOMIPRAMINE HCL [Suspect]
     Indication: NEUROSIS
     Dosage: 50 MG; 3 TIMES A DAY; ORAL
     Route: 048
     Dates: start: 20070823, end: 20071119
  2. ALPRAZOLAM [Concomitant]
  3. INDERAL RETARD [Concomitant]

REACTIONS (4)
  - ANXIETY [None]
  - ARRHYTHMIA [None]
  - HYPERTONIA [None]
  - PALPITATIONS [None]
